FAERS Safety Report 8223467-X (Version None)
Quarter: 2012Q1

REPORT INFORMATION
  Report Type: 
  Country: None (occurrence: None)
  Receive Date: 20120321
  Receipt Date: 20120309
  Transmission Date: 20120608
  Serious: Yes (Hospitalization, Other)
  Sender: FDA-Public Use
  Company Number: US-BAYER-2011-049773

PATIENT
  Age: 29 Year
  Sex: Female
  Weight: 57.596 kg

DRUGS (4)
  1. YAZ [Suspect]
     Dosage: UNK
     Dates: start: 20070101, end: 20090901
  2. PERCOCET [Concomitant]
     Indication: PAIN
  3. VICODIN [Concomitant]
  4. TORADOL [Concomitant]
     Indication: PAIN

REACTIONS (6)
  - CHOLELITHIASIS [None]
  - ANXIETY [None]
  - ANHEDONIA [None]
  - ABDOMINAL PAIN UPPER [None]
  - CHOLECYSTITIS CHRONIC [None]
  - PAIN [None]
